FAERS Safety Report 5481044-8 (Version None)
Quarter: 2007Q4

REPORT INFORMATION
  Report Type: 
  Country: None (occurrence: None)
  Receive Date: 20071009
  Receipt Date: 20070927
  Transmission Date: 20080405
  Serious: Yes (Hospitalization)
  Sender: FDA-Public Use
  Company Number: BR-PFIZER INC-2007078192

PATIENT
  Sex: Female
  Weight: 53 kg

DRUGS (3)
  1. EXUBERA [Suspect]
     Indication: DIABETES MELLITUS
     Route: 055
     Dates: start: 20070712, end: 20070815
  2. INSULIN DETEMIR [Concomitant]
  3. EUTHYROX [Concomitant]
     Route: 048
     Dates: start: 20010901

REACTIONS (6)
  - DYSPNOEA [None]
  - ERYTHEMA [None]
  - HEADACHE [None]
  - INFLUENZA [None]
  - SWELLING [None]
  - TACHYCARDIA [None]
